FAERS Safety Report 20665604 (Version 1)
Quarter: 2022Q2

REPORT INFORMATION
  Report Type: Spontaneous
  Country: HR (occurrence: HR)
  Receive Date: 20220402
  Receipt Date: 20220402
  Transmission Date: 20220721
  Serious: Yes (Other)
  Sender: FDA-Public Use
  Company Number: None

PATIENT
  Age: 40 Year
  Sex: Male

DRUGS (4)
  1. TEGRETOL [Suspect]
     Active Substance: CARBAMAZEPINE
     Indication: Product used for unknown indication
     Dosage: 8 G, QD (20 TBL 400 MG (8 GRAMA))
     Route: 048
     Dates: start: 20211228, end: 20211228
  2. ALPRAZOLAM [Suspect]
     Active Substance: ALPRAZOLAM
     Indication: Product used for unknown indication
     Dosage: 7.5 MG, QD (30 TBL 0.25 MG (7.5 MILIGRAMA))
     Route: 048
     Dates: start: 20211228, end: 20211228
  3. TOPAMAX [Suspect]
     Active Substance: TOPIRAMATE
     Indication: Product used for unknown indication
     Dosage: 1 G, QD (20 TBL 50 MG (1 GRAM))
     Route: 048
     Dates: start: 20211228, end: 20211228
  4. CLARITIN [Suspect]
     Active Substance: LORATADINE
     Indication: Product used for unknown indication
     Dosage: 25 MG, QD (5 TBL 5 MG (25 MG))
     Route: 048
     Dates: start: 20211228, end: 20211228

REACTIONS (3)
  - Intentional overdose [Unknown]
  - Suicide attempt [Unknown]
  - Aggression [Unknown]

NARRATIVE: CASE EVENT DATE: 20211228
